FAERS Safety Report 16688092 (Version 1)
Quarter: 2019Q3

REPORT INFORMATION
  Report Type: Spontaneous
  Country: US (occurrence: US)
  Receive Date: 20190624
  Receipt Date: 20190624
  Transmission Date: 20191004
  Serious: Yes (Other)
  Sender: FDA-Public Use
  Company Number: None

PATIENT
  Age: 90 Year
  Sex: Female
  Weight: 54.88 kg

DRUGS (9)
  1. PHENOBARITOL [Concomitant]
  2. PRAVSTATIN SODIUM [Concomitant]
  3. CLOPIDOGEL [Concomitant]
  4. FUROSEMIDE. [Concomitant]
     Active Substance: FUROSEMIDE
  5. METORPOLOL TARTRATE [Concomitant]
  6. AMLOPIDINE BESYLATE [Concomitant]
     Active Substance: AMLODIPINE BESYLATE
  7. IRBESARTAN 300MG [Suspect]
     Active Substance: IRBESARTAN
     Indication: HYPERTENSION
     Dosage: ?          QUANTITY:90 DF DOSAGE FORM;?
     Route: 048
     Dates: start: 2014
  8. METOPROLOL SUCCINATE. [Concomitant]
     Active Substance: METOPROLOL SUCCINATE
  9. PRESER VISION AREDS 2 FORMULA [Concomitant]

REACTIONS (2)
  - Precancerous skin lesion [None]
  - Basal cell carcinoma [None]
